FAERS Safety Report 9103249 (Version 5)
Quarter: 2013Q3

REPORT INFORMATION
  Report Type: Report from Study
  Country: FR (occurrence: FR)
  Receive Date: 20130219
  Receipt Date: 20130723
  Transmission Date: 20140515
  Serious: Yes (Death, Hospitalization, Disabling, Other)
  Sender: FDA-Public Use
  Company Number: FR-CELGENEUS-056-C4047-13021588

PATIENT
  Age: 71 Year
  Sex: Female
  Weight: 58 kg

DRUGS (8)
  1. CC-4047 [Suspect]
     Indication: PLASMA CELL MYELOMA
     Dosage: 3 MILLIGRAM
     Route: 048
     Dates: start: 20121009
  2. CC-4047 [Suspect]
     Dosage: 3 MILLIGRAM
     Route: 048
     Dates: end: 20130225
  3. DEXAMETHASONE [Concomitant]
     Indication: PLASMA CELL MYELOMA
     Route: 048
     Dates: start: 20121009, end: 20121226
  4. ASPEGIC [Concomitant]
     Indication: PROPHYLAXIS
     Route: 065
  5. FILGRASTIM [Concomitant]
     Indication: PRODUCT USED FOR UNKNOWN INDICATION
     Dosage: MONDAY AND THURSDAY
     Route: 065
  6. ZELITREX [Concomitant]
     Indication: PRODUCT USED FOR UNKNOWN INDICATION
     Dosage: MORNING AND EVENINGS
     Route: 065
  7. DIFFU K [Concomitant]
     Indication: PRODUCT USED FOR UNKNOWN INDICATION
     Dosage: 1 MORNINGS
     Route: 065
  8. CACID [Concomitant]
     Indication: PRODUCT USED FOR UNKNOWN INDICATION
     Route: 065

REACTIONS (6)
  - Optic neuritis [Not Recovered/Not Resolved]
  - Plasma cell myeloma [Fatal]
  - Loss of consciousness [Fatal]
  - Plasmacytoma [Unknown]
  - Haemoglobin decreased [Unknown]
  - Platelet count decreased [Unknown]
